FAERS Safety Report 14356699 (Version 1)
Quarter: 2018Q1

REPORT INFORMATION
  Report Type: Spontaneous
  Country: US (occurrence: US)
  Receive Date: 20180105
  Receipt Date: 20180105
  Transmission Date: 20180509
  Serious: Yes (Other)
  Sender: FDA-Public Use
  Company Number: US-PRINSTON PHARMACEUTICAL INC.-2017PRN00585

PATIENT
  Age: 46 Year
  Sex: Female
  Weight: 108.84 kg

DRUGS (3)
  1. LISINOPRIL. [Suspect]
     Active Substance: LISINOPRIL
     Indication: HYPERTENSION
     Dosage: 40 MG, 1X/DAY
     Route: 048
     Dates: start: 20171222, end: 20171226
  2. METOPROLOL. [Concomitant]
     Active Substance: METOPROLOL
     Dosage: 100 MG, 2X/DAY
  3. LISINOPRIL. [Suspect]
     Active Substance: LISINOPRIL
     Dosage: 40 MG, 2X/DAY
     Route: 048
     Dates: start: 20171227

REACTIONS (3)
  - Headache [Not Recovered/Not Resolved]
  - Drug ineffective [Not Recovered/Not Resolved]
  - Hypertension [Not Recovered/Not Resolved]

NARRATIVE: CASE EVENT DATE: 201712
